FAERS Safety Report 25990095 (Version 1)
Quarter: 2025Q4

REPORT INFORMATION
  Report Type: Spontaneous
  Country: EU (occurrence: EU)
  Receive Date: 20251103
  Receipt Date: 20251103
  Transmission Date: 20260118
  Serious: Yes (Other)
  Sender: ABBVIE
  Company Number: EU-ABBVIE-6526256

PATIENT
  Sex: Male

DRUGS (1)
  1. RINVOQ [Suspect]
     Active Substance: UPADACITINIB
     Indication: Dermatitis atopic
     Dosage: DOSAGE FORM-FILM-COATED TABLET
     Route: 048

REACTIONS (2)
  - Visual impairment [Recovered/Resolved with Sequelae]
  - Herpes ophthalmic [Recovered/Resolved with Sequelae]
